FAERS Safety Report 4276616-2 (Version None)
Quarter: 2004Q1

REPORT INFORMATION
  Report Type: 
  Country: None (occurrence: None)
  Receive Date: 20040120
  Receipt Date: 20040112
  Transmission Date: 20041129
  Serious: Yes (Death)
  Sender: FDA-Public Use
  Company Number: US-JNJFOC-20040102798

PATIENT
  Age: 43 Year
  Sex: Female

DRUGS (1)
  1. TOPAMAX [Suspect]
     Indication: BIPOLAR DISORDER
     Dosage: ORAL
     Route: 048

REACTIONS (1)
  - THERAPEUTIC AGENT TOXICITY [None]
